FAERS Safety Report 4665291-0 (Version None)
Quarter: 2005Q2

REPORT INFORMATION
  Report Type: 
  Country: None (occurrence: None)
  Receive Date: 20050517
  Receipt Date: 20050502
  Transmission Date: 20051028
  Serious: Yes (Other)
  Sender: FDA-Public Use
  Company Number: USA050495999

PATIENT
  Age: 59 Year
  Sex: Female

DRUGS (1)
  1. GLUCAGON [Suspect]
     Indication: HYPOGLYCAEMIA

REACTIONS (4)
  - BLOOD GLUCOSE DECREASED [None]
  - COMA [None]
  - DRUG INEFFECTIVE [None]
  - PHARMACEUTICAL PRODUCT COMPLAINT [None]
